FAERS Safety Report 4551291-8 (Version None)
Quarter: 2005Q1

REPORT INFORMATION
  Report Type: 
  Country: None (occurrence: None)
  Receive Date: 20050110
  Receipt Date: 20041228
  Transmission Date: 20050727
  Serious: No
  Sender: FDA-Public Use
  Company Number: 04H-153-0284888-00

PATIENT
  Age: 40 Year
  Sex: Female

DRUGS (3)
  1. LEUCOVORIN CALCIUM [Suspect]
     Indication: CHEMOTHERAPY
     Dosage: 300 MG/M2, WEEKLY CYCLE FOR 24 HOUR INFUSION, INTRAVENOUS
     Route: 042
  2. ETOPOSIDE [Suspect]
     Indication: GASTROOESOPHAGEAL CANCER
     Dosage: 1 CYCLE, INTRAVENOUS
     Route: 042
  3. FLUOROURACIL [Suspect]
     Indication: GASTROOESOPHAGEAL CANCER
     Dosage: 1400-2600MG/M2, WKLY CYCLE-24 HR INFUSION, INTRAVENOUS
     Route: 042

REACTIONS (2)
  - HEPATOTOXICITY [None]
  - VIRAL HEPATITIS CARRIER [None]
